FAERS Safety Report 6285311-X (Version None)
Quarter: 2009Q3

REPORT INFORMATION
  Report Type: 
  Country: None (occurrence: None)
  Receive Date: 20090727
  Receipt Date: 20090716
  Transmission Date: 20100115
  Serious: Yes (Other)
  Sender: FDA-Public Use
  Company Number: US-ELI_LILLY_AND_COMPANY-US200907003663

PATIENT
  Sex: Female
  Weight: 88.889 kg

DRUGS (7)
  1. BYETTA [Suspect]
     Indication: TYPE 2 DIABETES MELLITUS
     Dosage: 5 UG, 2/D
     Route: 058
     Dates: start: 20070101
  2. BYETTA [Suspect]
     Dosage: 10 UG, 2/D
     Route: 058
  3. PLAVIX [Concomitant]
     Indication: TRANSIENT ISCHAEMIC ATTACK
     Dosage: 75 MG, DAILY (1/D)
     Route: 048
  4. ASPIRIN [Concomitant]
     Indication: TRANSIENT ISCHAEMIC ATTACK
     Route: 048
  5. ATACAND [Concomitant]
     Dosage: 8 MG, DAILY (1/D)
     Route: 048
  6. SINGULAIR [Concomitant]
     Dosage: 10 MG, UNK
     Route: 048
  7. ZYRTEC [Concomitant]
     Dosage: 20 MG, UNK
     Route: 048

REACTIONS (5)
  - ABDOMINAL PAIN UPPER [None]
  - MICROALBUMINURIA [None]
  - OFF LABEL USE [None]
  - PALPITATIONS [None]
  - RENAL DISORDER [None]
